FAERS Safety Report 4316553-8 (Version None)
Quarter: 2004Q1

REPORT INFORMATION
  Report Type: 
  Country: None (occurrence: None)
  Receive Date: 20040308
  Receipt Date: 20031210
  Transmission Date: 20041129
  Serious: Yes (Other)
  Sender: FDA-Public Use
  Company Number: PHEH2003US11491

PATIENT
  Age: 66 Year
  Sex: Male

DRUGS (6)
  1. GLEEVEC [Suspect]
     Indication: GASTROINTESTINAL STROMAL TUMOUR
     Dosage: 400 MG, QD, ORAL
     Route: 048
     Dates: start: 20031029
  2. LASIX [Concomitant]
  3. CARDIAC THERAPY [Concomitant]
  4. METHOTREXATE [Concomitant]
  5. COUMADIN [Concomitant]
  6. TRICOR [Concomitant]

REACTIONS (1)
  - BLOOD CREATININE INCREASED [None]
